FAERS Safety Report 8619533-7 (Version None)
Quarter: 2012Q3

REPORT INFORMATION
  Report Type: 
  Country: None (occurrence: None)
  Receive Date: 20120824
  Receipt Date: 20120404
  Transmission Date: 20120928
  Serious: No
  Sender: FDA-Public Use
  Company Number: US-ASTRAZENECA-2012SE22551

PATIENT
  Age: 30 Year
  Sex: Female

DRUGS (3)
  1. SYMBICORT [Suspect]
     Dosage: UNKNOWN, UNKNOWN FREQUENCY
     Route: 055
  2. PREDNISONE TAB [Concomitant]
  3. NEBULIZERS [Concomitant]

REACTIONS (1)
  - PARADOXICAL DRUG REACTION [None]
